FAERS Safety Report 5384046-5 (Version None)
Quarter: 2007Q3

REPORT INFORMATION
  Report Type: 
  Country: None (occurrence: None)
  Receive Date: 20070709
  Receipt Date: 20070503
  Transmission Date: 20080115
  Serious: Yes (Death)
  Sender: FDA-Public Use
  Company Number: US-2007-015730

PATIENT
  Age: 44 Year
  Sex: Male

DRUGS (1)
  1. CAMPATH [Suspect]
     Indication: ACUTE LYMPHOCYTIC LEUKAEMIA
     Dosage: DOSING NOT AVAILABLE
     Dates: start: 20060901, end: 20061001

REACTIONS (1)
  - MALIGNANT NEOPLASM PROGRESSION [None]
